FAERS Safety Report 10331158 (Version 1)
Quarter: 2014Q3

REPORT INFORMATION
  Report Type: Spontaneous
  Country: US (occurrence: None)
  Receive Date: 20140718
  Receipt Date: 20140718
  Transmission Date: 20150326
  Serious: Yes (Hospitalization, Other)
  Sender: FDA-Public Use
  Company Number: NSR_01586_2014

PATIENT
  Age: 17 Year
  Sex: Female

DRUGS (1)
  1. BACLOFEN. [Suspect]
     Active Substance: BACLOFEN
     Indication: PRODUCT USED FOR UNKNOWN INDICATION
     Dosage: 28 DF 1X, NOT THE PRESCRIBED DOSE, ESTIMATED DOSE

REACTIONS (17)
  - Lactic acidosis [None]
  - Generalised tonic-clonic seizure [None]
  - Mydriasis [None]
  - Electroencephalogram abnormal [None]
  - White blood cell disorder [None]
  - Cranial nerve paralysis [None]
  - Respiratory failure [None]
  - Overdose [None]
  - CSF protein increased [None]
  - Areflexia [None]
  - Paralysis flaccid [None]
  - Coma [None]
  - Unresponsive to stimuli [None]
  - Fall [None]
  - Nuclear magnetic resonance imaging abnormal [None]
  - Vomiting [None]
  - Autonomic nervous system imbalance [None]
